FAERS Safety Report 5075687-3 (Version None)
Quarter: 2006Q3

REPORT INFORMATION
  Report Type: 
  Country: None (occurrence: None)
  Receive Date: 20060803
  Receipt Date: 20060803
  Transmission Date: 20061208
  Serious: Yes (Hospitalization)
  Sender: FDA-Public Use
  Company Number: None

PATIENT
  Age: 50 Year
  Sex: Female
  Weight: 68 kg

DRUGS (1)
  1. MAXIPIME [Suspect]
     Dosage: 2 GRAMS Q12H

REACTIONS (1)
  - CLOSTRIDIUM DIFFICILE COLITIS [None]
